FAERS Safety Report 6181258-8 (Version None)
Quarter: 2009Q2

REPORT INFORMATION
  Report Type: 
  Country: None (occurrence: None)
  Receive Date: 20090506
  Receipt Date: 20090501
  Transmission Date: 20091009
  Serious: Yes (Hospitalization)
  Sender: FDA-Public Use
  Company Number: PL-BRISTOL-MYERS SQUIBB COMPANY-14609432

PATIENT
  Age: 53 Year
  Sex: Male
  Weight: 86 kg

DRUGS (11)
  1. PACLITAXEL [Suspect]
     Indication: NON-SMALL CELL LUNG CANCER
     Dosage: INITIAL DOSE 12DEC08
     Route: 042
     Dates: start: 20090216, end: 20090216
  2. CARBOPLATIN [Suspect]
     Indication: NON-SMALL CELL LUNG CANCER
     Dosage: INITIAL DOSE ON 12DEC08
     Route: 042
     Dates: start: 20090216, end: 20090216
  3. BEVACIZUMAB [Suspect]
     Indication: NON-SMALL CELL LUNG CANCER
     Dosage: INITIAL DOSE 12DEC08
     Route: 042
     Dates: start: 20090216, end: 20090216
  4. DEXAMETHASONE 4MG TAB [Concomitant]
     Indication: PREMEDICATION
     Dates: start: 20090105, end: 20090105
  5. DIPHERGAN [Concomitant]
     Indication: PREMEDICATION
     Dates: start: 20090105, end: 20090105
  6. RANITIDINE [Concomitant]
     Indication: PREMEDICATION
     Dates: start: 20090105, end: 20090105
  7. PARACETAMOL [Concomitant]
     Indication: PREMEDICATION
     Dates: start: 20090105, end: 20090105
  8. ONDANSETRON [Concomitant]
     Indication: PROPHYLAXIS OF NAUSEA AND VOMITING
     Dates: start: 20090105, end: 20090105
  9. METOCLOPRAMIDE [Concomitant]
     Indication: PROPHYLAXIS OF NAUSEA AND VOMITING
     Dates: start: 20090105, end: 20090105
  10. SODIUM CHLORIDE 0.9% [Concomitant]
     Dosage: 1 DF=500ML
     Dates: start: 20090105, end: 20090105
  11. DARBEPOETIN ALFA [Concomitant]
     Indication: ANAEMIA
     Dates: start: 20090105, end: 20090105

REACTIONS (3)
  - ANAEMIA [None]
  - DEEP VEIN THROMBOSIS [None]
  - RENAL IMPAIRMENT [None]
